FAERS Safety Report 23472326 (Version 1)
Quarter: 2024Q1

REPORT INFORMATION
  Report Type: Spontaneous
  Country: FR (occurrence: FR)
  Receive Date: 20240202
  Receipt Date: 20240202
  Transmission Date: 20240410
  Serious: Yes (Life-Threatening)
  Sender: FDA-Public Use
  Company Number: None

PATIENT
  Age: 63 Year
  Sex: Male
  Weight: 68.5 kg

DRUGS (5)
  1. KETOCONAZOLE [Suspect]
     Active Substance: KETOCONAZOLE
     Indication: Seborrhoeic dermatitis
     Dosage: 2 %, GEL EN SACHET-DOSE
     Route: 003
     Dates: start: 20230116, end: 20230116
  2. AMOXICILLIN\CLAVULANIC ACID [Suspect]
     Active Substance: AMOXICILLIN\CLAVULANIC ACID
     Indication: Lung disorder
     Dosage: 1 G/200 MG,POWDER FOR SOLUTION FOR INJECTION/INFUSION (I.V.)
     Route: 042
     Dates: start: 20230116, end: 20230117
  3. ELIQUIS [Concomitant]
     Active Substance: APIXABAN
  4. POTASSIUM CHLORIDE [Concomitant]
     Active Substance: POTASSIUM CHLORIDE
  5. DUPHALAC [Concomitant]
     Active Substance: LACTULOSE

REACTIONS (2)
  - Respiratory distress [Recovered/Resolved]
  - Angioedema [Recovered/Resolved]

NARRATIVE: CASE EVENT DATE: 20230117
